FAERS Safety Report 8162085-9 (Version None)
Quarter: 2012Q1

REPORT INFORMATION
  Report Type: 
  Country: None (occurrence: None)
  Receive Date: 20120224
  Receipt Date: 20110908
  Transmission Date: 20120608
  Serious: No
  Sender: FDA-Public Use
  Company Number: US-BRISTOL-MYERS SQUIBB COMPANY-15974447

PATIENT
  Sex: Female

DRUGS (4)
  1. GLUCOPHAGE [Suspect]
  2. ACTOS [Suspect]
     Dates: start: 20070101
  3. METFORMIN HCL [Suspect]
     Indication: DIABETES MELLITUS
     Dates: start: 20070101
  4. AVANDIA [Suspect]

REACTIONS (2)
  - DRUG INEFFECTIVE [None]
  - DIARRHOEA [None]
